FAERS Safety Report 24665127 (Version 1)
Quarter: 2024Q4

REPORT INFORMATION
  Report Type: Spontaneous
  Country: US (occurrence: None)
  Receive Date: 20241121
  Receipt Date: 20241121
  Transmission Date: 20250115
  Serious: Yes (unspecified)
  Sender: Public
  Company Number: None

PATIENT
  Age: 44 Year
  Sex: Female
  Weight: 79.38 kg

DRUGS (7)
  1. DEPO-PROVERA [Suspect]
     Active Substance: MEDROXYPROGESTERONE ACETATE
     Indication: Contraception
     Dates: start: 19950501, end: 19990701
  2. LYRICA [Concomitant]
     Active Substance: PREGABALIN
  3. TRAMADOL [Concomitant]
     Active Substance: TRAMADOL
  4. HYDROCODONE [Concomitant]
     Active Substance: HYDROCODONE
  5. hormone replacement therapy injections [Concomitant]
  6. VITAMIN D [Concomitant]
     Active Substance: VITAMIN D NOS
  7. MINERALS\VITAMINS [Concomitant]
     Active Substance: MINERALS\VITAMINS

REACTIONS (6)
  - Intermenstrual bleeding [None]
  - Loss of libido [None]
  - Migraine [None]
  - Dysmenorrhoea [None]
  - Hysterectomy [None]
  - Neoplasm [None]

NARRATIVE: CASE EVENT DATE: 20071001
